FAERS Safety Report 13344922 (Version 1)
Quarter: 2017Q1

REPORT INFORMATION
  Report Type: Report from Study
  Country: US (occurrence: US)
  Receive Date: 20170317
  Receipt Date: 20170317
  Transmission Date: 20170428
  Serious: No
  Sender: FDA-Public Use
  Company Number: PHEH2017US007711

PATIENT
  Sex: Female

DRUGS (10)
  1. COSENTYX [Suspect]
     Active Substance: SECUKINUMAB
     Dosage: 150 MG, QW
     Route: 058
     Dates: start: 20170310
  2. MULTI VITAMIN [Concomitant]
     Active Substance: VITAMINS
     Indication: PRODUCT USED FOR UNKNOWN INDICATION
     Dosage: UNK UNK, QD
     Route: 065
  3. AMITRIPTYLINE [Concomitant]
     Active Substance: AMITRIPTYLINE
     Indication: PRODUCT USED FOR UNKNOWN INDICATION
     Dosage: UNK UNK, QD
     Route: 065
  4. GLUCOSAMIN [Concomitant]
     Indication: PRODUCT USED FOR UNKNOWN INDICATION
     Dosage: UNK UNK, BID
     Route: 065
  5. COSENTYX [Suspect]
     Active Substance: SECUKINUMAB
     Indication: PRODUCT USED FOR UNKNOWN INDICATION
     Dosage: 150 MG, QW
     Route: 058
  6. LYRICA [Concomitant]
     Active Substance: PREGABALIN
     Indication: PRODUCT USED FOR UNKNOWN INDICATION
     Dosage: 3 DF, QD
     Route: 065
  7. TIZANIDINE. [Concomitant]
     Active Substance: TIZANIDINE
     Indication: PRODUCT USED FOR UNKNOWN INDICATION
     Dosage: 3 DF, QD
     Route: 065
  8. TRAZODONE [Concomitant]
     Active Substance: TRAZODONE HYDROCHLORIDE
     Indication: PRODUCT USED FOR UNKNOWN INDICATION
     Dosage: UNK UNK, QD
     Route: 065
  9. IBUPROFEN. [Concomitant]
     Active Substance: IBUPROFEN
     Indication: PRODUCT USED FOR UNKNOWN INDICATION
     Dosage: UNK UNK, QD
     Route: 065
  10. LYSINE [Concomitant]
     Active Substance: LYSINE
     Indication: PRODUCT USED FOR UNKNOWN INDICATION
     Dosage: UNK UNK, QD
     Route: 065

REACTIONS (1)
  - Drug ineffective [Unknown]
